FAERS Safety Report 4934036-9 (Version None)
Quarter: 2006Q1

REPORT INFORMATION
  Report Type: 
  Country: None (occurrence: None)
  Receive Date: 20060303
  Receipt Date: 20060222
  Transmission Date: 20060701
  Serious: Yes (Hospitalization, Disabling)
  Sender: FDA-Public Use
  Company Number: 2006020596

PATIENT
  Sex: Male
  Weight: 89 kg

DRUGS (8)
  1. LIPITOR [Suspect]
     Indication: HYPERCHOLESTEROLAEMIA
     Dosage: 80 MG (80 MG, 1 IN 1 D), ORAL
     Route: 048
     Dates: start: 19980101, end: 20040817
  2. INSULIN (INSULIN) [Concomitant]
  3. PAROXETINE HCL [Concomitant]
  4. ZANTAC [Concomitant]
  5. ALL OTHER THERAPEUTIC PRODUCTS (ALL OTHER THERAPEUTIC PRODUCTS) [Concomitant]
  6. WARFARIN SODIUM [Concomitant]
  7. NORVASC [Concomitant]
  8. MONODUR (ISOSORBIDE MONONITRATE) [Concomitant]

REACTIONS (10)
  - ACTIVITIES OF DAILY LIVING IMPAIRED [None]
  - CEREBROVASCULAR ACCIDENT [None]
  - FEELING ABNORMAL [None]
  - IMPAIRED DRIVING ABILITY [None]
  - MALAISE [None]
  - MOBILITY DECREASED [None]
  - MUSCLE ATROPHY [None]
  - MUSCULAR WEAKNESS [None]
  - MYALGIA [None]
  - TRANSIENT ISCHAEMIC ATTACK [None]
